FAERS Safety Report 20405668 (Version 2)
Quarter: 2022Q1

REPORT INFORMATION
  Report Type: Spontaneous
  Country: CO (occurrence: CO)
  Receive Date: 20220131
  Receipt Date: 20220316
  Transmission Date: 20220423
  Serious: Yes (Other)
  Sender: FDA-Public Use
  Company Number: CO-PFIZER INC-202200143006

PATIENT
  Age: 70 Year
  Sex: Female

DRUGS (1)
  1. LYRICA [Suspect]
     Active Substance: PREGABALIN
     Dosage: 50 MG, UNESPECIFIED FRECUENCY
     Route: 048
     Dates: start: 20211127

REACTIONS (4)
  - Aneurysm [Unknown]
  - Headache [Unknown]
  - Pain in extremity [Unknown]
  - Illness [Unknown]

NARRATIVE: CASE EVENT DATE: 20211201
